FAERS Safety Report 13034635 (Version 1)
Quarter: 2016Q4

REPORT INFORMATION
  Report Type: Spontaneous
  Country: US (occurrence: US)
  Receive Date: 20161216
  Receipt Date: 20161216
  Transmission Date: 20170207
  Serious: No
  Sender: FDA-Public Use
  Company Number: US-BAUSCH-BL-2016-016711

PATIENT
  Age: 68 Year
  Sex: Female

DRUGS (1)
  1. TIMOLOL GEL FORMING SOLUTION [Suspect]
     Active Substance: TIMOLOL
     Indication: GLAUCOMA
     Dosage: IN BOTH EYE
     Route: 047

REACTIONS (2)
  - Product container issue [Unknown]
  - Incorrect product storage [Unknown]
